FAERS Safety Report 5409636-2 (Version None)
Quarter: 2007Q3

REPORT INFORMATION
  Report Type: 
  Country: None (occurrence: None)
  Receive Date: 20070807
  Receipt Date: 20070731
  Transmission Date: 20080115
  Serious: Yes (Hospitalization)
  Sender: FDA-Public Use
  Company Number: CLOF-10620

PATIENT
  Age: 60 Year
  Sex: Female
  Weight: 72.5 kg

DRUGS (10)
  1. CLOFARABINE. MFR: GENZYME [Suspect]
     Indication: ACUTE MYELOID LEUKAEMIA
     Dosage: 30 MG/M2 QD IV
     Route: 042
     Dates: start: 20070626, end: 20070630
  2. CLOFARABINE. MFR: GENZYME [Suspect]
     Indication: ACUTE MYELOID LEUKAEMIA
     Dosage: 30 MG/M2 QD IV
     Route: 042
     Dates: start: 20070725, end: 20070726
  3. PROPOXYPHENE HYDROCHLORIDE [Concomitant]
  4. TYLENOL (CAPLET) [Concomitant]
  5. BENADRYL [Concomitant]
  6. VALTREX [Concomitant]
  7. ZOFRAN [Concomitant]
  8. CALCIUM CARBONATE [Concomitant]
  9. ALLOPURINOL [Concomitant]
  10. LEVAQUIN [Concomitant]

REACTIONS (15)
  - ASTHENIA [None]
  - BONE PAIN [None]
  - CAPILLARY LEAK SYNDROME [None]
  - CHILLS [None]
  - DRY SKIN [None]
  - FEELING HOT [None]
  - FLUSHING [None]
  - GENERALISED ERYTHEMA [None]
  - HYPOTENSION [None]
  - INFUSION RELATED REACTION [None]
  - MASTOIDITIS [None]
  - MYALGIA [None]
  - PAIN IN EXTREMITY [None]
  - RASH PRURITIC [None]
  - SKIN WARM [None]
